FAERS Safety Report 10335870 (Version 1)
Quarter: 2014Q3

REPORT INFORMATION
  Report Type: Spontaneous
  Country: US (occurrence: US)
  Receive Date: 20140723
  Receipt Date: 20140723
  Transmission Date: 20150326
  Serious: Yes (Hospitalization)
  Sender: FDA-Public Use
  Company Number: US-BRISTOL-MYERS SQUIBB COMPANY-19180314

PATIENT
  Age: 82 Year
  Sex: Female

DRUGS (18)
  1. COUMADIN [Suspect]
     Active Substance: WARFARIN SODIUM
     Indication: DEEP VEIN THROMBOSIS
  2. AMBIEN [Concomitant]
     Active Substance: ZOLPIDEM TARTRATE
     Dates: start: 200704
  3. LANOXIN [Concomitant]
     Active Substance: DIGOXIN
  4. DYAZIDE [Concomitant]
     Active Substance: HYDROCHLOROTHIAZIDE\TRIAMTERENE
  5. DIGITEK [Concomitant]
     Active Substance: DIGOXIN
  6. SYNTHROID [Concomitant]
     Active Substance: LEVOTHYROXINE SODIUM
  7. RITUXIMAB [Concomitant]
     Active Substance: RITUXIMAB
     Indication: RHEUMATOID ARTHRITIS
     Dosage: 500 MG ON DAYS 1 AND 15 EVERY 24 WEEKS
     Route: 042
  8. CRESTOR [Concomitant]
     Active Substance: ROSUVASTATIN CALCIUM
     Dates: start: 20070321
  9. ZEMPLAR [Concomitant]
     Active Substance: PARICALCITOL
     Dates: start: 20080515
  10. ASA [Concomitant]
     Active Substance: ASPIRIN
  11. MTX [Concomitant]
     Active Substance: METHOTREXATE SODIUM
  12. PREDNISONE. [Concomitant]
     Active Substance: PREDNISONE
  13. DARVOCET [Concomitant]
     Active Substance: ACETAMINOPHEN\PROPOXYPHENE HYDROCHLORIDE
  14. PACERONE [Concomitant]
     Active Substance: AMIODARONE HYDROCHLORIDE
  15. AMIODARONE [Concomitant]
     Active Substance: AMIODARONE
  16. FOLIC ACID. [Concomitant]
     Active Substance: FOLIC ACID
  17. FERROUS SULFATE [Concomitant]
     Active Substance: FERROUS SULFATE\FERROUS SULFATE, DRIED
  18. DIOVAN [Concomitant]
     Active Substance: VALSARTAN

REACTIONS (1)
  - Gastrointestinal haemorrhage [Recovered/Resolved]

NARRATIVE: CASE EVENT DATE: 20090213
